FAERS Safety Report 6442424-7 (Version None)
Quarter: 2009Q4

REPORT INFORMATION
  Report Type: 
  Country: None (occurrence: None)
  Receive Date: 20091112
  Receipt Date: 20091029
  Transmission Date: 20100525
  Serious: Yes (Other)
  Sender: FDA-Public Use
  Company Number: 1000009625

PATIENT
  Age: 57 Year
  Sex: Female
  Weight: 105 kg

DRUGS (3)
  1. ESCITALOPRAM [Suspect]
     Indication: DEPRESSION
     Dosage: 10 MG (10 MG, 1 IN 1 D), ORAL
     Route: 048
     Dates: start: 20090115, end: 20090415
  2. TOPALGIC [Concomitant]
  3. VASTAREL [Concomitant]

REACTIONS (1)
  - PARKINSONISM [None]
